FAERS Safety Report 17145367 (Version 5)
Quarter: 2020Q2

REPORT INFORMATION
  Report Type: Report from Study
  Country: US (occurrence: US)
  Receive Date: 20191212
  Receipt Date: 20200610
  Transmission Date: 20200713
  Serious: Yes (Other)
  Sender: FDA-Public Use
  Company Number: US-ROCHE-2490506

PATIENT
  Sex: Female

DRUGS (21)
  1. OCREVUS [Suspect]
     Active Substance: OCRELIZUMAB
     Dosage: NEXT SUBSEQUENT OCRELIZUMAB DOSES: 08/JUN/2017, 22/JUN/2017, 21/DEC/2017, 16/JUL/2018, 21/MAR/2019 A
     Route: 042
     Dates: start: 20171221
  2. ZANAFLEX [Concomitant]
     Active Substance: TIZANIDINE HYDROCHLORIDE
     Dosage: TAKE 3 TABLETS (6 MG) BY MOTUTH 4 TIMES A DAY.
     Route: 065
  3. CARVEDILOL. [Concomitant]
     Active Substance: CARVEDILOL
     Dosage: TAKE 1 TABLET BY MOUTH 2 TIMES A DAY
     Route: 065
  4. IMITREX [Concomitant]
     Active Substance: SUMATRIPTAN SUCCINATE
     Dosage: TAKE 1 TABLET BY MOUTH AS NEEDED FOR MIGRAINE MAY REPEAT IN 2 HRS IF NEEDED DO NOT EXCEED 2/24 HRS
     Route: 065
  5. OCREVUS [Suspect]
     Active Substance: OCRELIZUMAB
     Dosage: RE-START
     Route: 042
     Dates: start: 20190321, end: 20190405
  6. LEVOTHYROXINE. [Concomitant]
     Active Substance: LEVOTHYROXINE
     Dosage: TAKE 50 MCG BY MOUTH 1 TIMES PER DAY
     Route: 065
  7. TOPAMAX [Concomitant]
     Active Substance: TOPIRAMATE
     Dosage: TAKE 1 TABLET BY MOUTH TWICE A DAY.
     Route: 065
  8. NORVASC [Concomitant]
     Active Substance: AMLODIPINE BESYLATE
     Dosage: TAKE 10 MG BY MOUTH 1 TIMES PER DAY
     Route: 065
  9. CYMBALTA [Concomitant]
     Active Substance: DULOXETINE HYDROCHLORIDE
     Dosage: TAKE BY MOUTH 1 TIME PER DAY
     Route: 065
  10. ESTRACE [Concomitant]
     Active Substance: ESTRADIOL
     Dosage: TAKE 1 TABLET BY MOUTH 1 TIME PER DAY
     Route: 065
  11. VITAMIN D3 [Concomitant]
     Active Substance: CHOLECALCIFEROL
     Dosage: TAKE 1000 UNITS BY MOUTH 2 TIMES A DAY
     Route: 065
  12. CYTOMEL [Concomitant]
     Active Substance: LIOTHYRONINE SODIUM
     Dosage: TAKE 25 MCG BY MOUTH 1 TIME PER DAY
     Route: 065
  13. ZESTRIL [Concomitant]
     Active Substance: LISINOPRIL
     Dosage: TAKE 20 MG TABLET BY MOUTH 1 TIMES PER DAY.
     Route: 065
  14. MYRBETRIQ [Concomitant]
     Active Substance: MIRABEGRON
     Dosage: TAKE 50 MG BY MOUTH 1 TIME PER DAY
     Route: 065
  15. MOBIC [Concomitant]
     Active Substance: MELOXICAM
     Dosage: TAKE 15 MG BY MOUTH 1 TIME A DAY WITH BREAKFAST
     Route: 065
  16. LIORESAL [Concomitant]
     Active Substance: BACLOFEN
     Dosage: TAKE 2.5 TABLET (25 MG) BY MOUTH 4 TIMES A DAY.
     Route: 065
  17. MINIPRESS [Concomitant]
     Active Substance: PRAZOSIN HYDROCHLORIDE
     Dosage: TAKE 3 MG BY MOUTH 1 TIME PER DAY
     Route: 065
  18. ZOFRAN [Concomitant]
     Active Substance: ONDANSETRON HYDROCHLORIDE
     Dosage: TAKE 4 MG BY MOUTH EVERY 6 HOURS NEEDED.
     Route: 065
  19. OCREVUS [Suspect]
     Active Substance: OCRELIZUMAB
     Indication: PRIMARY PROGRESSIVE MULTIPLE SCLEROSIS
     Dosage: ONGOING : NO
     Route: 042
     Dates: start: 20170608, end: 20170622
  20. OCREVUS [Suspect]
     Active Substance: OCRELIZUMAB
     Dosage: ONGOING YES
     Route: 042
     Dates: start: 20170608
  21. TRILEPTAL [Concomitant]
     Active Substance: OXCARBAZEPINE
     Dosage: TAKE 1 TABLET BY MOUTH 2 TIMES A DAY
     Route: 065

REACTIONS (4)
  - Diarrhoea [Unknown]
  - Product use issue [Unknown]
  - Clostridium difficile infection [Unknown]
  - Off label use [Unknown]
